FAERS Safety Report 10974083 (Version 1)
Quarter: 2015Q1

REPORT INFORMATION
  Report Type: Spontaneous
  Country: US (occurrence: None)
  Receive Date: 20150331
  Receipt Date: 20150331
  Transmission Date: 20150721
  Serious: Yes (Hospitalization)
  Sender: FDA-Public Use
  Company Number: None

PATIENT
  Age: 47 Year
  Sex: Male
  Weight: 119.9 kg

DRUGS (1)
  1. PROPOFOL. [Suspect]
     Active Substance: PROPOFOL
     Indication: ALCOHOL WITHDRAWAL SYNDROME
     Route: 042
     Dates: start: 20150106, end: 20150108

REACTIONS (5)
  - Hypertriglyceridaemia [None]
  - Propofol infusion syndrome [None]
  - Acute kidney injury [None]
  - Sepsis [None]
  - Rhabdomyolysis [None]

NARRATIVE: CASE EVENT DATE: 20150108
